FAERS Safety Report 8351532-5 (Version None)
Quarter: 2012Q2

REPORT INFORMATION
  Report Type: 
  Country: None (occurrence: None)
  Receive Date: 20120511
  Receipt Date: 20120503
  Transmission Date: 20120825
  Serious: Yes (Hospitalization)
  Sender: FDA-Public Use
  Company Number: US-AMGEN-USASP2012028095

PATIENT
  Age: 50 Year
  Sex: Female

DRUGS (1)
  1. ENBREL [Suspect]
     Indication: RHEUMATOID ARTHRITIS
     Dosage: 50 MG, QWK
     Dates: start: 20090710, end: 20100101

REACTIONS (16)
  - NASAL CONGESTION [None]
  - OROPHARYNGEAL PAIN [None]
  - EATING DISORDER [None]
  - PARALYSIS [None]
  - FOOT FRACTURE [None]
  - INTERVERTEBRAL DISC PROTRUSION [None]
  - WEIGHT DECREASED [None]
  - ROTATOR CUFF SYNDROME [None]
  - NASOPHARYNGITIS [None]
  - EAR INFECTION [None]
  - INFLUENZA [None]
  - MALAISE [None]
  - RHEUMATOID ARTHRITIS [None]
  - ALOPECIA [None]
  - HYPOAESTHESIA [None]
  - STRESS [None]
